FAERS Safety Report 9763383 (Version 1)
Quarter: 2013Q4

REPORT INFORMATION
  Report Type: Spontaneous
  Country: US (occurrence: US)
  Receive Date: 20131216
  Receipt Date: 20131216
  Transmission Date: 20140711
  Serious: No
  Sender: FDA-Public Use
  Company Number: US-BIOGENIDEC-2013BI107669

PATIENT
  Sex: Female

DRUGS (8)
  1. TECFIDERA [Suspect]
     Indication: PRODUCT USED FOR UNKNOWN INDICATION
     Route: 048
  2. TECFIDERA [Suspect]
     Indication: PRODUCT USED FOR UNKNOWN INDICATION
     Route: 048
  3. ACYCLOVIR [Concomitant]
  4. YASMIN [Concomitant]
  5. SUBOXONE [Concomitant]
  6. PROVENTIL [Concomitant]
  7. TYLENOL [Concomitant]
  8. ADVIL [Concomitant]

REACTIONS (2)
  - Skin burning sensation [Unknown]
  - Vomiting [Unknown]
